FAERS Safety Report 23066379 (Version 3)
Quarter: 2023Q4

REPORT INFORMATION
  Report Type: Spontaneous
  Country: US (occurrence: US)
  Receive Date: 20231015
  Receipt Date: 20231120
  Transmission Date: 20240110
  Serious: No
  Sender: FDA-Public Use
  Company Number: US-SA-SAC20231006000091

PATIENT
  Age: 40 Year
  Sex: Female

DRUGS (1)
  1. DUPIXENT [Suspect]
     Active Substance: DUPILUMAB
     Indication: Eosinophilic oesophagitis
     Dosage: 300 MG, QW
     Route: 058
     Dates: start: 20230914

REACTIONS (5)
  - Injection site urticaria [Unknown]
  - Injection site erythema [Recovered/Resolved]
  - Fatigue [Unknown]
  - Somnolence [Unknown]
  - Dizziness postural [Recovering/Resolving]

NARRATIVE: CASE EVENT DATE: 20230101
